FAERS Safety Report 16554689 (Version 1)
Quarter: 2019Q3

REPORT INFORMATION
  Report Type: Spontaneous
  Country: US (occurrence: US)
  Receive Date: 20190710
  Receipt Date: 20190710
  Transmission Date: 20191004
  Serious: No
  Sender: FDA-Public Use
  Company Number: US-AKRON, INC.-2070632

PATIENT
  Sex: Male

DRUGS (1)
  1. CLOBETASOL PROPIOANATE CREAM [Suspect]
     Active Substance: CLOBETASOL PROPIONATE
     Route: 061

REACTIONS (1)
  - Rash [Recovered/Resolved]
